FAERS Safety Report 16005421 (Version 1)
Quarter: 2019Q1

REPORT INFORMATION
  Report Type: Spontaneous
  Country: US (occurrence: US)
  Receive Date: 20190225
  Receipt Date: 20190225
  Transmission Date: 20190418
  Serious: Yes (Disabling)
  Sender: FDA-Public Use
  Company Number: None

PATIENT
  Age: 69 Year
  Sex: Male
  Weight: 72.57 kg

DRUGS (1)
  1. EMERALD LEAF BALI KRATOM (HERBALS\MITRAGYNINE) [Suspect]
     Active Substance: HERBALS\MITRAGYNINE
     Route: 048

REACTIONS (9)
  - Thinking abnormal [None]
  - Insomnia [None]
  - Mental disorder [None]
  - Physical disability [None]
  - Pollakiuria [None]
  - Emotional distress [None]
  - Self-medication [None]
  - Anxiety [None]
  - Weight decreased [None]

NARRATIVE: CASE EVENT DATE: 20190202
